FAERS Safety Report 23862690 (Version 1)
Quarter: 2024Q2

REPORT INFORMATION
  Report Type: Spontaneous
  Country: US (occurrence: None)
  Receive Date: 20240515
  Receipt Date: 20240515
  Transmission Date: 20240716
  Serious: Yes (Other)
  Sender: FDA-Public Use
  Company Number: None

PATIENT
  Age: 27 Year
  Sex: Female
  Weight: 81 kg

DRUGS (6)
  1. SUTAB [Suspect]
     Active Substance: MAGNESIUM SULFATE\POTASSIUM CHLORIDE\SODIUM SULFATE
     Indication: Colonoscopy
     Dosage: OTHER QUANTITY : 12 TABLET(S);?FREQUENCY : ONCE;?
     Route: 048
     Dates: start: 20240421, end: 20240421
  2. TRULANCE [Concomitant]
     Active Substance: PLECANATIDE
  3. ERRIN [Concomitant]
     Active Substance: NORETHINDRONE
  4. VITAMIN B12 [Concomitant]
     Active Substance: CYANOCOBALAMIN
  5. FOLIC ACID [Concomitant]
     Active Substance: FOLIC ACID
  6. vitmain d [Concomitant]

REACTIONS (1)
  - Drug hypersensitivity [None]

NARRATIVE: CASE EVENT DATE: 20240421
